FAERS Safety Report 24653716 (Version 1)
Quarter: 2024Q4

REPORT INFORMATION
  Report Type: Spontaneous
  Country: US (occurrence: US)
  Receive Date: 20241122
  Receipt Date: 20241122
  Transmission Date: 20250115
  Serious: No
  Sender: NOVO NORDISK
  Company Number: US-NOVOPROD-1210540

PATIENT
  Age: 74 Year
  Sex: Female

DRUGS (1)
  1. TRESIBA [Suspect]
     Active Substance: INSULIN DEGLUDEC
     Indication: Type 2 diabetes mellitus
     Dosage: 25 IU, QD
     Route: 058

REACTIONS (2)
  - Pyrexia [Recovered/Resolved]
  - Sneezing [Recovering/Resolving]

NARRATIVE: CASE EVENT DATE: 20240410
